FAERS Safety Report 5070364-7 (Version None)
Quarter: 2006Q3

REPORT INFORMATION
  Report Type: 
  Country: None (occurrence: None)
  Receive Date: 20060731
  Receipt Date: 20060717
  Transmission Date: 20061208
  Serious: Yes (Hospitalization)
  Sender: FDA-Public Use
  Company Number: 2006085287

PATIENT
  Age: 52 Year
  Sex: Female
  Weight: 68 kg

DRUGS (11)
  1. SUTENT [Suspect]
     Indication: METASTATIC RENAL CELL CARCINOMA
     Dosage: 50 MG (50 MG, 1 IN 1 D), ORAL
     Route: 048
     Dates: start: 20060629
  2. ALPRAZOLAM [Concomitant]
  3. ENOXAPRIN (HEPARIN) [Concomitant]
  4. CARBAMAZEPINE [Concomitant]
  5. METOCLOPRAMIDE [Concomitant]
  6. LACTULOSE [Concomitant]
  7. CLODRONATE DISODIUM (CLODRONATE DISODIUM) [Concomitant]
  8. CALCITONIN SALMON [Concomitant]
  9. I.V. SOLUTIONS (I.V. SOLUTIONS) [Concomitant]
  10. SYNTOPHYLLIN (AMINOPHYLLINE) [Concomitant]
  11. NIMESULIDE (NIMESULIDE) [Concomitant]

REACTIONS (3)
  - CANDIDIASIS [None]
  - DEHYDRATION [None]
  - ELECTROLYTE IMBALANCE [None]
